FAERS Safety Report 18938648 (Version 1)
Quarter: 2021Q1

REPORT INFORMATION
  Report Type: Spontaneous
  Country: US (occurrence: US)
  Receive Date: 20210224
  Receipt Date: 20210224
  Transmission Date: 20210420
  Serious: Yes (Disabling, Other)
  Sender: FDA-Public Use
  Company Number: None

PATIENT
  Age: 41 Year
  Sex: Female
  Weight: 178 kg

DRUGS (2)
  1. RANITIDINE. [Suspect]
     Active Substance: RANITIDINE
  2. CLOBETASOL OINTMENT [Concomitant]
     Active Substance: CLOBETASOL

REACTIONS (10)
  - Vision blurred [None]
  - Fatigue [None]
  - Palpitations [None]
  - Mood swings [None]
  - Headache [None]
  - Dizziness [None]
  - Migraine [None]
  - Infection [None]
  - Constipation [None]
  - Abdominal pain [None]

NARRATIVE: CASE EVENT DATE: 20190819
